FAERS Safety Report 7793297-1 (Version None)
Quarter: 2011Q4

REPORT INFORMATION
  Report Type: 
  Country: None (occurrence: None)
  Receive Date: 20111003
  Receipt Date: 20110926
  Transmission Date: 20120403
  Serious: Yes (Other)
  Sender: FDA-Public Use
  Company Number: US-BAYER-200825612NA

PATIENT
  Sex: Male
  Weight: 91 kg

DRUGS (27)
  1. OPTIMARK [Suspect]
     Indication: ANGIOGRAM
  2. OPTIMARK [Suspect]
     Indication: NUCLEAR MAGNETIC RESONANCE IMAGING
  3. MULTIHANCE [Suspect]
     Indication: ANGIOGRAM
  4. FOSRENOL [Concomitant]
  5. VITAMINS NOS [Concomitant]
  6. PROCRIT [Concomitant]
  7. INSULIN [INSULIN] [Concomitant]
  8. MAGNEVIST [Suspect]
     Dosage: 19 ML, ONCE
     Dates: start: 20040716, end: 20040716
  9. MAGNEVIST [Suspect]
     Dosage: UNK UNK, ONCE
     Dates: start: 20050125, end: 20050125
  10. COUMADIN [Concomitant]
  11. CLONIDINE [Concomitant]
  12. LASIX [Concomitant]
  13. MAGNEVIST [Suspect]
     Indication: ANGIOGRAM
     Dosage: 15 ML, ONCE
     Route: 042
     Dates: start: 20021016, end: 20021016
  14. OMNISCAN [Suspect]
     Indication: NUCLEAR MAGNETIC RESONANCE IMAGING
  15. PROHANCE [Suspect]
     Indication: ANGIOGRAM
     Dosage: UNK UNK, ONCE
     Dates: start: 20021016, end: 20021016
  16. ACCUPRIL [Concomitant]
  17. RENAGEL [Concomitant]
  18. OMNISCAN [Suspect]
     Indication: ANGIOGRAM
  19. MULTIHANCE [Suspect]
     Indication: NUCLEAR MAGNETIC RESONANCE IMAGING
  20. PROHANCE [Suspect]
     Indication: NUCLEAR MAGNETIC RESONANCE IMAGING
  21. NOVOLIN R [Concomitant]
  22. TEMAZEPAM [Concomitant]
  23. PHOSLO [Concomitant]
  24. DIATX [Concomitant]
  25. MAGNEVIST [Suspect]
     Indication: NUCLEAR MAGNETIC RESONANCE IMAGING
     Dosage: UNK UNK, ONCE
     Dates: start: 20021115, end: 20021115
  26. GADOLINIUM IN UNSPECIFIED DRUG [Suspect]
     Indication: NUCLEAR MAGNETIC RESONANCE IMAGING
     Dosage: UNK
     Dates: start: 20021105, end: 20021105
  27. MINOXIDIL [Concomitant]

REACTIONS (19)
  - INJURY [None]
  - EMOTIONAL DISTRESS [None]
  - PAIN [None]
  - ANXIETY [None]
  - EXTREMITY CONTRACTURE [None]
  - ANHEDONIA [None]
  - MUSCLE TIGHTNESS [None]
  - MUSCLE FIBROSIS [None]
  - OEDEMA PERIPHERAL [None]
  - FATIGUE [None]
  - ACTIVITIES OF DAILY LIVING IMPAIRED [None]
  - SKIN TIGHTNESS [None]
  - SKIN INDURATION [None]
  - DEPRESSION [None]
  - NEPHROGENIC SYSTEMIC FIBROSIS [None]
  - JOINT RANGE OF MOTION DECREASED [None]
  - FRUSTRATION [None]
  - MYOSCLEROSIS [None]
  - JOINT CONTRACTURE [None]
